FAERS Safety Report 22316599 (Version 6)
Quarter: 2023Q2

REPORT INFORMATION
  Report Type: Spontaneous
  Country: US (occurrence: US)
  Receive Date: 20230513
  Receipt Date: 20230607
  Transmission Date: 20230722
  Serious: Yes (Other)
  Sender: FDA-Public Use
  Company Number: US-002147023-NVSC2023US109254

PATIENT
  Sex: Male

DRUGS (4)
  1. CARBOPLATIN [Suspect]
     Active Substance: CARBOPLATIN
     Indication: BRAF V600E mutation positive
     Dosage: UNK
     Route: 065
     Dates: end: 202212
  2. CARBOPLATIN [Suspect]
     Active Substance: CARBOPLATIN
     Indication: Astrocytoma
  3. VINCRISTINE [Suspect]
     Active Substance: VINCRISTINE
     Indication: BRAF V600E mutation positive
     Dosage: UNK
     Route: 065
     Dates: end: 202212
  4. VINCRISTINE [Suspect]
     Active Substance: VINCRISTINE
     Indication: Astrocytoma

REACTIONS (3)
  - Astrocytoma [Unknown]
  - Malignant neoplasm progression [Unknown]
  - Neoplasm progression [Unknown]
